FAERS Safety Report 13857701 (Version 3)
Quarter: 2017Q4

REPORT INFORMATION
  Report Type: Report from Study
  Country: None (occurrence: US)
  Receive Date: 20170811
  Receipt Date: 20171009
  Transmission Date: 20180320
  Serious: Yes (Hospitalization, Other)
  Sender: FDA-Public Use
  Company Number: US-ABBVIE-17K-163-2064405-00

PATIENT
  Age: 54 Year
  Sex: Male
  Weight: 97.16 kg

DRUGS (1)
  1. HUMIRA [Suspect]
     Active Substance: ADALIMUMAB
     Indication: COLITIS ULCERATIVE
     Route: 058
     Dates: start: 2016, end: 201708

REACTIONS (9)
  - Fatigue [Unknown]
  - Pruritus [Unknown]
  - Haemoglobin decreased [Recovering/Resolving]
  - Post procedural infection [Recovered/Resolved]
  - Dyskinesia [Unknown]
  - Dyspnoea [Unknown]
  - Thrombosis [Recovered/Resolved]
  - Hypotension [Unknown]
  - Heart rate irregular [Unknown]

NARRATIVE: CASE EVENT DATE: 201708
